FAERS Safety Report 8899383 (Version 1)
Quarter: 2012Q4

REPORT INFORMATION
  Report Type: 
  Country: US (occurrence: US)
  Receive Date: 20121108
  Receipt Date: 20121108
  Transmission Date: 20130627
  Serious: No
  Sender: FDA-Public Use
  Company Number: US-AMGEN-USASP2012032700

PATIENT
  Age: 38 Year
  Sex: Female
  Weight: 91.61 kg

DRUGS (18)
  1. ENBREL [Suspect]
     Indication: PRODUCT USED FOR UNKNOWN INDICATION
     Dosage: 50 mg, qwk
     Route: 058
  2. SINGULAIR [Concomitant]
     Dosage: 10 mg, UNK
  3. COZAAR [Concomitant]
     Dosage: 25 mg, UNK
  4. FLAGYL /00012501/ [Concomitant]
     Dosage: 250 mg, UNK
  5. TYLENOL W/CODEINE NO. 3 [Concomitant]
  6. NORVASC [Concomitant]
     Dosage: 5 mg, UNK
  7. LIPITOR [Concomitant]
     Dosage: 10 mg, UNK
  8. ALLEGRA [Concomitant]
     Dosage: 30 mg, UNK
  9. LANTUS [Concomitant]
     Dosage: 100 ml, UNK
  10. KETOCONAZOLE [Concomitant]
     Dosage: 2 %, UNK
  11. METFORMIN [Concomitant]
     Dosage: 500 mg, UNK
  12. GABAPENTIN [Concomitant]
     Dosage: 100 mg, UNK
  13. CLONIDINE [Concomitant]
     Dosage: 0.1 mg, UNK
  14. EPIPEN [Concomitant]
     Dosage: 0.3 mg, UNK
  15. PREVACID [Concomitant]
     Dosage: 15 mg, UNK
  16. ZETIA [Concomitant]
     Dosage: 10 mg, UNK
  17. PROAIR HFA [Concomitant]
  18. BYDUREON [Concomitant]

REACTIONS (1)
  - Clostridium difficile infection [Unknown]
